FAERS Safety Report 24664065 (Version 1)
Quarter: 2024Q4

REPORT INFORMATION
  Report Type: Spontaneous
  Country: TW (occurrence: TW)
  Receive Date: 20241126
  Receipt Date: 20241126
  Transmission Date: 20250114
  Serious: Yes (Other)
  Sender: ROCHE
  Company Number: TW-002147023-NVSC2024TW223616

PATIENT
  Age: 15 Year
  Sex: Female

DRUGS (2)
  1. RANIBIZUMAB [Suspect]
     Active Substance: RANIBIZUMAB
     Indication: Systemic lupus erythematosus
     Dosage: 2 DOSES (RIGHT EYE)
     Route: 050
  2. RANIBIZUMAB [Suspect]
     Active Substance: RANIBIZUMAB
     Indication: Neovascularisation

REACTIONS (4)
  - Retinal degeneration [Unknown]
  - Macular scar [Unknown]
  - Off label use [Unknown]
  - Off label use [Unknown]
